FAERS Safety Report 19411265 (Version 1)
Quarter: 2021Q2

REPORT INFORMATION
  Report Type: Spontaneous
  Country: AU (occurrence: AU)
  Receive Date: 20210614
  Receipt Date: 20210614
  Transmission Date: 20210717
  Serious: Yes (Other)
  Sender: FDA-Public Use
  Company Number: AU-ROCHE-2549308

PATIENT
  Sex: Female

DRUGS (1)
  1. OCREVUS [Suspect]
     Active Substance: OCRELIZUMAB
     Indication: PRODUCT USED FOR UNKNOWN INDICATION
     Dosage: DOSE 1A MID NOVEMBER AND 1B EARLY DECEMBER
     Route: 065
     Dates: start: 201911

REACTIONS (4)
  - Maternal exposure during pregnancy [Unknown]
  - Abdominal pain upper [Unknown]
  - Haemorrhage [Unknown]
  - Somatic symptom disorder of pregnancy [Unknown]
